FAERS Safety Report 8342155-2 (Version None)
Quarter: 2012Q2

REPORT INFORMATION
  Report Type: 
  Country: None (occurrence: None)
  Receive Date: 20120507
  Receipt Date: 20120427
  Transmission Date: 20120825
  Serious: Yes (Hospitalization)
  Sender: FDA-Public Use
  Company Number: CHPA2012GB009464

PATIENT
  Age: 69 Year
  Sex: Male

DRUGS (8)
  1. HALOPERIDOL [Concomitant]
     Dosage: UNK, UNK
  2. ASPIRIN [Concomitant]
     Dosage: UNK, UNK
  3. LIDOCAINE [Concomitant]
     Dosage: UNK, UNK
  4. SCOPOLAMINE [Suspect]
     Indication: SECRETION DISCHARGE
     Dosage: 400 UG, UNK
     Route: 058
     Dates: start: 20120405, end: 20120407
  5. BISOPROLOL FUMARATE [Concomitant]
     Dosage: UNK, UNK
  6. FUROSEMIDE [Concomitant]
     Dosage: UNK, UNK
  7. OXYCODONE HCL [Concomitant]
     Dosage: UNK, UNK
  8. GABAPENTIN [Concomitant]
     Dosage: UNK, UNK

REACTIONS (3)
  - SOMNOLENCE [None]
  - OFF LABEL USE [None]
  - UNRESPONSIVE TO STIMULI [None]
